FAERS Safety Report 5153134-0 (Version None)
Quarter: 2006Q4

REPORT INFORMATION
  Report Type: 
  Country: None (occurrence: None)
  Receive Date: 20061117
  Receipt Date: 20061106
  Transmission Date: 20070319
  Serious: Yes (Hospitalization)
  Sender: FDA-Public Use
  Company Number: FR-GLAXOSMITHKLINE-B0445503A

PATIENT
  Sex: Female
  Weight: 1.8 kg

DRUGS (5)
  1. RETROVIR [Suspect]
     Indication: ANTIVIRAL PROPHYLAXIS
     Dosage: .4MG FOUR TIMES PER DAY
     Route: 048
     Dates: start: 20060615, end: 20060622
  2. EPIVIR [Suspect]
     Indication: ANTIVIRAL PROPHYLAXIS
     Dosage: 3.5MG TWICE PER DAY
     Route: 048
     Dates: start: 20060615, end: 20060622
  3. RETROVIR [Concomitant]
     Dosage: 150MG PER DAY
  4. VIRAMUNE [Concomitant]
     Indication: ANTIVIRAL PROPHYLAXIS
     Dosage: 3.5MG SINGLE DOSE
     Route: 048
     Dates: start: 20060617, end: 20060617
  5. FUZEON [Concomitant]
     Indication: ANTIVIRAL PROPHYLAXIS

REACTIONS (3)
  - DRUG EXPOSURE DURING PREGNANCY [None]
  - NEUTROPENIA [None]
  - THROMBOCYTOPENIA [None]
